FAERS Safety Report 15567718 (Version 1)
Quarter: 2018Q4

REPORT INFORMATION
  Report Type: Spontaneous
  Country: US (occurrence: US)
  Receive Date: 20181030
  Receipt Date: 20181030
  Transmission Date: 20190205
  Serious: Yes (Other)
  Sender: FDA-Public Use
  Company Number: US-B.I. PHARMACEUTICALS,INC./RIDGEFIELD-2018-BI-052216

PATIENT
  Sex: Male

DRUGS (1)
  1. SPIRIVA [Suspect]
     Active Substance: TIOTROPIUM BROMIDE MONOHYDRATE
     Indication: RESPIRATION ABNORMAL
     Route: 055

REACTIONS (11)
  - Apparent death [Unknown]
  - Visual impairment [Not Recovered/Not Resolved]
  - Lethargy [Unknown]
  - Fatigue [Unknown]
  - Arterial occlusive disease [Unknown]
  - Insomnia [Unknown]
  - Type 2 diabetes mellitus [Unknown]
  - Dyspnoea [Unknown]
  - Hypertension [Unknown]
  - Ill-defined disorder [Unknown]
  - Spinal osteoarthritis [Unknown]
